FAERS Safety Report 7932297-5 (Version None)
Quarter: 2011Q4

REPORT INFORMATION
  Report Type: 
  Country: None (occurrence: None)
  Receive Date: 20111121
  Receipt Date: 20111108
  Transmission Date: 20120403
  Serious: Yes (Hospitalization)
  Sender: FDA-Public Use
  Company Number: US-ELI_LILLY_AND_COMPANY-US201104005837

PATIENT
  Sex: Female

DRUGS (18)
  1. OMEPRAZOLE [Concomitant]
     Dosage: UNK, QD
  2. FORTEO [Suspect]
     Indication: OSTEOPOROSIS
     Dosage: 20 UG, QD
     Dates: start: 20110412
  3. ANTIACID [Concomitant]
  4. ZOCOR [Concomitant]
  5. FORTEO [Suspect]
     Dosage: 20 UG, QD
     Dates: end: 20110915
  6. ASPIRIN [Concomitant]
     Dosage: 325 MG, QD
  7. CALCIUM [Concomitant]
  8. TOPAMAX [Concomitant]
     Dosage: 25 MG, QD
  9. PERCOCET [Concomitant]
     Indication: PAIN
     Dosage: 1-2 TABLETS 4-6 HOURS
  10. MOBIC [Concomitant]
     Dosage: 15 MG, QD
  11. FORTEO [Suspect]
     Dosage: 20 UG, QD
  12. PRILOSEC [Concomitant]
  13. CRESTOR [Concomitant]
     Dosage: 10 MG, QD
  14. PAMELOR [Concomitant]
  15. FORTEO [Suspect]
     Dosage: 20 UG, QD
     Dates: end: 20110601
  16. COLACE [Concomitant]
     Dosage: 100 MG, BID
  17. VITAMIN B-12 [Concomitant]
  18. FORTEO [Suspect]
     Dosage: 20 UG, QD

REACTIONS (17)
  - PAIN IN EXTREMITY [None]
  - MEMORY IMPAIRMENT [None]
  - JOINT SWELLING [None]
  - SOMNOLENCE [None]
  - MUSCLE SPASMS [None]
  - HEADACHE [None]
  - FEAR [None]
  - ARTHROPATHY [None]
  - FLATULENCE [None]
  - VOMITING [None]
  - BLOOD CALCIUM INCREASED [None]
  - ARTHRALGIA [None]
  - DIZZINESS [None]
  - CONSTIPATION [None]
  - NAUSEA [None]
  - OSTEOPOROSIS [None]
  - PAIN [None]
